FAERS Safety Report 6415221-6 (Version None)
Quarter: 2009Q4

REPORT INFORMATION
  Report Type: 
  Country: None (occurrence: None)
  Receive Date: 20091027
  Receipt Date: 20090914
  Transmission Date: 20100525
  Serious: No
  Sender: FDA-Public Use
  Company Number: US-BAYER-200929671NA

PATIENT
  Age: 52 Year
  Sex: Female
  Weight: 73 kg

DRUGS (8)
  1. CLIMARA PRO [Suspect]
     Indication: HORMONE LEVEL ABNORMAL
     Dosage: HIP AREA
     Route: 062
     Dates: start: 20090726
  2. VASOTEC [Concomitant]
     Indication: HYPERTENSION
  3. ADDERRALL [Concomitant]
  4. LIPITOR [Concomitant]
  5. CYMBALTA [Concomitant]
  6. TORADOL [Concomitant]
  7. OXYCODONE [Concomitant]
     Indication: BACK PAIN
  8. FLEXERIL [Concomitant]
     Indication: BACK PAIN

REACTIONS (3)
  - HOT FLUSH [None]
  - HYPERHIDROSIS [None]
  - NIGHT SWEATS [None]
